FAERS Safety Report 9877338 (Version 2)
Quarter: 2014Q1

REPORT INFORMATION
  Report Type: Spontaneous
  Country: SE (occurrence: SE)
  Receive Date: 20140206
  Receipt Date: 20140212
  Transmission Date: 20141002
  Serious: Yes (Other)
  Sender: FDA-Public Use
  Company Number: SE-BAYER-2014-016057

PATIENT
  Age: 31 Year
  Sex: Female

DRUGS (3)
  1. MIRENA [Suspect]
     Dosage: 20 MCG/24HR, CONT
     Route: 015
     Dates: start: 20130723, end: 20140123
  2. YASMIN [Suspect]
  3. OMEPRAZOLE [Concomitant]
     Indication: GASTRITIS

REACTIONS (16)
  - Uterine infection [Recovered/Resolved]
  - Uterine haemorrhage [Recovering/Resolving]
  - Infection [Recovering/Resolving]
  - Vaginal discharge [Recovering/Resolving]
  - Abdominal pain lower [Recovering/Resolving]
  - Dyspareunia [Recovering/Resolving]
  - Abdominal distension [None]
  - Depressive symptom [Recovering/Resolving]
  - Premenstrual syndrome [Recovering/Resolving]
  - Asthenia [Recovering/Resolving]
  - Loss of libido [Recovering/Resolving]
  - Acne [Recovering/Resolving]
  - Skin disorder [Recovering/Resolving]
  - Alopecia [Recovering/Resolving]
  - Oligomenorrhoea [Recovering/Resolving]
  - Depressive symptom [None]
